FAERS Safety Report 5590541-6 (Version None)
Quarter: 2008Q1

REPORT INFORMATION
  Report Type: 
  Country: None (occurrence: None)
  Receive Date: 20080114
  Receipt Date: 20080109
  Transmission Date: 20080703
  Serious: Yes (Other)
  Sender: FDA-Public Use
  Company Number: DE-BOEHRINGER INGELHEIM PHARMACEUTICALS, INC.-2008-DE-00144DE

PATIENT
  Sex: Female
  Weight: 2.74 kg

DRUGS (1)
  1. APTIVUS [Suspect]
     Route: 064

REACTIONS (2)
  - ASPHYXIA [None]
  - NEONATAL ASPIRATION [None]
